FAERS Safety Report 9820916 (Version 2)
Quarter: 2014Q1

REPORT INFORMATION
  Report Type: Spontaneous
  Country: US (occurrence: US)
  Receive Date: 20140116
  Receipt Date: 20140214
  Transmission Date: 20141002
  Serious: No
  Sender: FDA-Public Use
  Company Number: US-PFIZER INC-2014011790

PATIENT
  Sex: Male

DRUGS (1)
  1. ADVIL [Suspect]
     Dosage: UNK
     Dates: start: 201401

REACTIONS (3)
  - Dysuria [Unknown]
  - Pollakiuria [Unknown]
  - Burning sensation [Unknown]
